FAERS Safety Report 19698702 (Version 1)
Quarter: 2021Q3

REPORT INFORMATION
  Report Type: Spontaneous
  Country: US (occurrence: US)
  Receive Date: 20210813
  Receipt Date: 20210813
  Transmission Date: 20211014
  Serious: Yes (Other)
  Sender: FDA-Public Use
  Company Number: US-AMNEAL PHARMACEUTICALS-2021-AMRX-03287

PATIENT
  Age: 36 Year
  Sex: Female

DRUGS (3)
  1. CABERGOLINE. [Suspect]
     Active Substance: CABERGOLINE
     Dosage: DOSE WAS REDUCED TO 0.25MG EVERY OTHER WEEK
     Route: 065
  2. CABERGOLINE. [Suspect]
     Active Substance: CABERGOLINE
     Dosage: UNK
     Route: 065
     Dates: start: 2019, end: 2019
  3. CABERGOLINE. [Suspect]
     Active Substance: CABERGOLINE
     Indication: HYPERPROLACTINAEMIA
     Dosage: UNK
     Route: 065
     Dates: start: 2009

REACTIONS (2)
  - Visual field defect [Recovered/Resolved]
  - Empty sella syndrome [Unknown]

NARRATIVE: CASE EVENT DATE: 2018
